FAERS Safety Report 5370297-2 (Version None)
Quarter: 2007Q2

REPORT INFORMATION
  Report Type: 
  Country: None (occurrence: None)
  Receive Date: 20070626
  Receipt Date: 20070615
  Transmission Date: 20071010
  Serious: Yes (Hospitalization)
  Sender: FDA-Public Use
  Company Number: US-ROCHE-374203

PATIENT
  Age: 49 Year
  Sex: Male
  Weight: 103.8 kg

DRUGS (6)
  1. RIBAVIRIN [Suspect]
     Route: 048
     Dates: start: 20040618, end: 20040710
  2. RIBAVIRIN [Suspect]
     Route: 048
     Dates: start: 20040718
  3. PEG-INTERFERON ALFA 2A (RO 25-8310) [Suspect]
     Route: 058
     Dates: start: 20040618, end: 20040710
  4. PEG-INTERFERON ALFA 2A (RO 25-8310) [Suspect]
     Route: 058
     Dates: start: 20040718
  5. CELEXA [Concomitant]
     Route: 048
     Dates: start: 20040618
  6. PREVACID [Concomitant]
     Route: 048

REACTIONS (1)
  - GASTROENTERITIS [None]
